FAERS Safety Report 12426194 (Version 1)
Quarter: 2016Q2

REPORT INFORMATION
  Report Type: Spontaneous
  Country: IT (occurrence: IT)
  Receive Date: 20160601
  Receipt Date: 20160601
  Transmission Date: 20160815
  Serious: Yes (Other)
  Sender: FDA-Public Use
  Company Number: IT-JNJFOC-20160528949

PATIENT
  Age: 49 Year
  Sex: Female

DRUGS (1)
  1. REMICADE [Suspect]
     Active Substance: INFLIXIMAB
     Indication: RHEUMATOID ARTHRITIS
     Route: 042
     Dates: start: 20090101, end: 20111107

REACTIONS (4)
  - Psoriasis [Recovering/Resolving]
  - Osteoarthritis [Recovering/Resolving]
  - Drug ineffective [Recovering/Resolving]
  - Talipes [Recovering/Resolving]

NARRATIVE: CASE EVENT DATE: 20111107
